FAERS Safety Report 8193477-X (Version None)
Quarter: 2012Q1

REPORT INFORMATION
  Report Type: 
  Country: None (occurrence: None)
  Receive Date: 20120308
  Receipt Date: 20120301
  Transmission Date: 20120608
  Serious: Yes (Other)
  Sender: FDA-Public Use
  Company Number: US-AMGEN-USASP2012011056

PATIENT
  Age: 62 Year
  Sex: Female
  Weight: 67.574 kg

DRUGS (4)
  1. NEULASTA [Suspect]
     Indication: NEUTROPENIA
     Dosage: 6 MG, PER CHEMO REGIM
     Route: 058
     Dates: start: 20120206, end: 20120216
  2. TAXOTERE [Concomitant]
     Dosage: 150 MG, Q3WK
     Route: 042
  3. CETIRIZINE [Concomitant]
     Dosage: 10 MG, UNK
     Route: 048
  4. CYTOXAN [Concomitant]
     Dosage: 1050 MG, Q3WK
     Route: 042

REACTIONS (2)
  - URTICARIA [None]
  - HYPERSENSITIVITY [None]
